FAERS Safety Report 15838656 (Version 1)
Quarter: 2019Q1

REPORT INFORMATION
  Report Type: Spontaneous
  Country: GB (occurrence: GB)
  Receive Date: 20190117
  Receipt Date: 20190117
  Transmission Date: 20190417
  Serious: Yes (Other)
  Sender: FDA-Public Use
  Company Number: GB-AMGEN-GBRSP2019004076

PATIENT
  Age: 45 Year
  Sex: Male

DRUGS (1)
  1. REPATHA [Suspect]
     Active Substance: EVOLOCUMAB
     Indication: HYPERCHOLESTEROLAEMIA
     Dosage: 140 MG/ML, UNK
     Route: 058

REACTIONS (11)
  - Malaise [Unknown]
  - Headache [Unknown]
  - Dizziness [Unknown]
  - Dry eye [Unknown]
  - Erythema [Unknown]
  - Ocular hyperaemia [Unknown]
  - Constipation [Unknown]
  - Urinary incontinence [Unknown]
  - Fatigue [Unknown]
  - Eye pain [Unknown]
  - Pain in extremity [Unknown]
